FAERS Safety Report 24727073 (Version 1)
Quarter: 2024Q4

REPORT INFORMATION
  Report Type: Spontaneous
  Country: JP (occurrence: JP)
  Receive Date: 20241212
  Receipt Date: 20241212
  Transmission Date: 20250114
  Serious: Yes (Other)
  Sender: PFIZER
  Company Number: JP-PFIZER INC-202400320417

PATIENT
  Age: 7 Decade
  Sex: Female

DRUGS (1)
  1. SOMAVERT [Suspect]
     Active Substance: PEGVISOMANT
     Route: 058

REACTIONS (6)
  - Depressed level of consciousness [Unknown]
  - Hallucination, auditory [Unknown]
  - Hallucination [Unknown]
  - Loss of consciousness [Unknown]
  - Delirium [Unknown]
  - Memory impairment [Unknown]
